FAERS Safety Report 5672267-3 (Version None)
Quarter: 2008Q1

REPORT INFORMATION
  Report Type: 
  Country: None (occurrence: None)
  Receive Date: 20080319
  Receipt Date: 20080313
  Transmission Date: 20080703
  Serious: Yes (Death, Hospitalization)
  Sender: FDA-Public Use
  Company Number: PHHO2008CA00612

PATIENT
  Age: 60 Year
  Sex: Female
  Weight: 65 kg

DRUGS (9)
  1. RAD001A [Suspect]
     Indication: RENAL TRANSPLANT
     Dosage: 1 MG, BID
     Route: 048
     Dates: start: 20000922, end: 20080108
  2. RAD001A [Suspect]
     Dosage: 1 MG, BID
     Route: 048
     Dates: start: 20080119
  3. NEORAL [Suspect]
     Indication: RENAL TRANSPLANT
     Dosage: 50 MG, BID
     Route: 048
  4. PREDNISONE [Suspect]
  5. GLYBURIDE [Concomitant]
  6. METFORMIN HCL [Concomitant]
  7. ACTEROL FORTE [Concomitant]
  8. LIPITOR [Concomitant]
  9. EPREX [Concomitant]

REACTIONS (7)
  - CARDIAC FAILURE CONGESTIVE [None]
  - ENDOTRACHEAL INTUBATION [None]
  - MALAISE [None]
  - PLEURAL EFFUSION [None]
  - RESPIRATORY DISTRESS [None]
  - SEPSIS [None]
  - THORACIC CAVITY DRAINAGE [None]
